FAERS Safety Report 8521146-2 (Version None)
Quarter: 2012Q3

REPORT INFORMATION
  Report Type: 
  Country: None (occurrence: None)
  Receive Date: 20120712
  Receipt Date: 20120712
  Transmission Date: 20120928
  Serious: Yes (Other)
  Sender: FDA-Public Use
  Company Number: None

PATIENT
  Age: 64 Year
  Sex: Female

DRUGS (1)
  1. TOBRAMYCIN [Suspect]
     Indication: EYE INFECTION
     Dosage: 5MG 4TIMES A DAY UNK
     Dates: start: 20120706, end: 20120710

REACTIONS (5)
  - OCULAR HYPERAEMIA [None]
  - DISCOMFORT [None]
  - PRURITUS [None]
  - SWELLING [None]
  - TOXICITY TO VARIOUS AGENTS [None]
